FAERS Safety Report 14400842 (Version 1)
Quarter: 2018Q1

REPORT INFORMATION
  Report Type: Spontaneous
  Country: TR (occurrence: TR)
  Receive Date: 20180117
  Receipt Date: 20180117
  Transmission Date: 20180509
  Serious: Yes (Other)
  Sender: FDA-Public Use
  Company Number: TR-SUN PHARMACEUTICAL INDUSTRIES LTD-2018RR-160265

PATIENT
  Sex: Female

DRUGS (3)
  1. ENOXAPARIN SODIUM. [Suspect]
     Active Substance: ENOXAPARIN SODIUM
     Indication: AUTOIMMUNE HEPATITIS
     Dosage: 0.2 ML, UNK
     Route: 065
  2. PREDNISOLONE. [Suspect]
     Active Substance: PREDNISOLONE
     Indication: AUTOIMMUNE HEPATITIS
     Dosage: 4 MG, DAILY
     Route: 065
  3. ACETYLSALICYLIC ACID [Suspect]
     Active Substance: ASPIRIN
     Indication: AUTOIMMUNE HEPATITIS
     Dosage: 100 MG, DAILY
     Route: 065

REACTIONS (3)
  - Exposure during pregnancy [Unknown]
  - Premature labour [Unknown]
  - Live birth [Unknown]
